FAERS Safety Report 17369277 (Version 1)
Quarter: 2020Q1

REPORT INFORMATION
  Report Type: Spontaneous
  Country: US (occurrence: US)
  Receive Date: 20200203
  Receipt Date: 20200203
  Transmission Date: 20200409
  Serious: Yes (Disabling)
  Sender: FDA-Public Use
  Company Number: None

PATIENT
  Age: 37 Year
  Sex: Female
  Weight: 78.75 kg

DRUGS (1)
  1. AJOVY [Suspect]
     Active Substance: FREMANEZUMAB-VFRM
     Indication: HEADACHE
     Dosage: ?          QUANTITY:1 INJECTION(S);OTHER ROUTE:INJECTED IN STOMACH?
     Dates: start: 20190428, end: 20191020

REACTIONS (13)
  - Paraesthesia [None]
  - Diarrhoea [None]
  - Feeling abnormal [None]
  - Tremor [None]
  - Palpitations [None]
  - Antinuclear antibody positive [None]
  - Nausea [None]
  - Pain in extremity [None]
  - Arthralgia [None]
  - Tendonitis [None]
  - Restless legs syndrome [None]
  - Therapy cessation [None]
  - Hypoaesthesia [None]

NARRATIVE: CASE EVENT DATE: 20191105
